FAERS Safety Report 8136459-6 (Version None)
Quarter: 2012Q1

REPORT INFORMATION
  Report Type: 
  Country: None (occurrence: None)
  Receive Date: 20120214
  Receipt Date: 20120207
  Transmission Date: 20120608
  Serious: Yes (Hospitalization, Other)
  Sender: FDA-Public Use
  Company Number: CHPA2012RU002864

PATIENT
  Age: 38 Year
  Sex: Female

DRUGS (1)
  1. THERAFLU EXTRA STRENGTH COLD + FLU [Suspect]
     Dosage: UNK, UNK
     Route: 048

REACTIONS (1)
  - URTICARIA [None]
